FAERS Safety Report 5389973-0 (Version None)
Quarter: 2007Q3

REPORT INFORMATION
  Report Type: 
  Country: None (occurrence: None)
  Receive Date: 20070718
  Receipt Date: 20070404
  Transmission Date: 20080115
  Serious: Yes (Hospitalization)
  Sender: FDA-Public Use
  Company Number: GB-ASTRAZENECA-2007GB00739

PATIENT
  Age: 2 Hour
  Sex: Male
  Weight: 2.6 kg

DRUGS (4)
  1. SEROQUEL [Suspect]
     Indication: SCHIZOPHRENIA, PARANOID TYPE
     Route: 064
     Dates: start: 20020101
  2. BUSPAR [Suspect]
     Indication: ANXIETY
     Route: 064
     Dates: start: 20020101
  3. FOLIC ACID [Concomitant]
     Indication: PREGNANCY
     Route: 064
     Dates: start: 20050101
  4. SEROXAT [Concomitant]
     Indication: DEPRESSION
     Route: 064
     Dates: start: 20020101

REACTIONS (3)
  - CONVULSION NEONATAL [None]
  - FEELING JITTERY [None]
  - HYPOCALCAEMIA [None]
